FAERS Safety Report 17965054 (Version 1)
Quarter: 2020Q2

REPORT INFORMATION
  Report Type: Spontaneous
  Country: IT (occurrence: IT)
  Receive Date: 20200630
  Receipt Date: 20200630
  Transmission Date: 20200714
  Serious: Yes (Hospitalization)
  Sender: FDA-Public Use
  Company Number: NVSC2020IT181429

PATIENT
  Age: 49 Year
  Sex: Male

DRUGS (3)
  1. GENTAMICIN. [Suspect]
     Active Substance: GENTAMICIN
     Indication: PNEUMONITIS
     Dosage: UNK
     Route: 042
     Dates: start: 20200330, end: 20200402
  2. CEFEPIME [Suspect]
     Active Substance: CEFEPIME HYDROCHLORIDE
     Indication: PNEUMONITIS
     Dosage: 6 G, QD
     Route: 042
     Dates: start: 20200320, end: 20200326
  3. PIPERACILLIN SODIUM,TAZOBACTAM SODIUM [Suspect]
     Active Substance: PIPERACILLIN SODIUM\TAZOBACTAM SODIUM
     Indication: PNEUMONITIS
     Dosage: UNK
     Route: 042
     Dates: start: 20200326, end: 20200404

REACTIONS (6)
  - Petechiae [Recovering/Resolving]
  - Drug eruption [Recovering/Resolving]
  - Eosinophilia [Recovering/Resolving]
  - Troponin increased [Recovering/Resolving]
  - Pyrexia [Recovering/Resolving]
  - Lymphocyte morphology abnormal [Recovering/Resolving]

NARRATIVE: CASE EVENT DATE: 20200407
